FAERS Safety Report 6385750-2 (Version None)
Quarter: 2009Q4

REPORT INFORMATION
  Report Type: 
  Country: None (occurrence: None)
  Receive Date: 20091002
  Receipt Date: 20080923
  Transmission Date: 20100525
  Serious: No
  Sender: FDA-Public Use
  Company Number: US-ASTRAZENECA-2008UW20333

PATIENT
  Sex: Female
  Weight: 82.6 kg

DRUGS (3)
  1. ARIMIDEX [Suspect]
     Indication: BREAST CANCER
     Route: 048
  2. INSULIN [Concomitant]
  3. MOBIC [Concomitant]

REACTIONS (1)
  - ONYCHOCLASIS [None]
